FAERS Safety Report 21656004 (Version 1)
Quarter: 2022Q4

REPORT INFORMATION
  Report Type: Spontaneous
  Country: US (occurrence: US)
  Receive Date: 20221129
  Receipt Date: 20221129
  Transmission Date: 20230113
  Serious: No
  Sender: FDA-Public Use
  Company Number: US-GLAXOSMITHKLINE-USCH2022AMR045879

PATIENT
  Age: 21 Year
  Sex: Female

DRUGS (17)
  1. DIPHENHYDRAMINE\PHENYLEPHRINE [Suspect]
     Active Substance: DIPHENHYDRAMINE\PHENYLEPHRINE
     Indication: COVID-19
     Dosage: UNK
  2. DIPHENHYDRAMINE\PHENYLEPHRINE [Suspect]
     Active Substance: DIPHENHYDRAMINE\PHENYLEPHRINE
     Indication: Headache
  3. DIPHENHYDRAMINE\PHENYLEPHRINE [Suspect]
     Active Substance: DIPHENHYDRAMINE\PHENYLEPHRINE
     Indication: Nasal congestion
  4. DIPHENHYDRAMINE\PHENYLEPHRINE [Suspect]
     Active Substance: DIPHENHYDRAMINE\PHENYLEPHRINE
     Indication: Ageusia
  5. DIPHENHYDRAMINE\PHENYLEPHRINE [Suspect]
     Active Substance: DIPHENHYDRAMINE\PHENYLEPHRINE
     Indication: Anosmia
  6. DIPHENHYDRAMINE\PHENYLEPHRINE [Suspect]
     Active Substance: DIPHENHYDRAMINE\PHENYLEPHRINE
     Indication: Cough
  7. IBUPROFEN [Suspect]
     Active Substance: IBUPROFEN
     Indication: Headache
     Dosage: UNK
  8. IBUPROFEN [Suspect]
     Active Substance: IBUPROFEN
     Indication: Nasal congestion
  9. IBUPROFEN [Suspect]
     Active Substance: IBUPROFEN
     Indication: Ageusia
  10. IBUPROFEN [Suspect]
     Active Substance: IBUPROFEN
     Indication: Anosmia
  11. IBUPROFEN [Suspect]
     Active Substance: IBUPROFEN
     Indication: Cough
  12. IBUPROFEN [Suspect]
     Active Substance: IBUPROFEN
     Indication: COVID-19
  13. ACETAMINOPHEN [Suspect]
     Active Substance: ACETAMINOPHEN
     Indication: Headache
     Dosage: UNK
  14. ACETAMINOPHEN [Suspect]
     Active Substance: ACETAMINOPHEN
     Indication: Nasal congestion
  15. ACETAMINOPHEN [Suspect]
     Active Substance: ACETAMINOPHEN
     Indication: Ageusia
  16. ACETAMINOPHEN [Suspect]
     Active Substance: ACETAMINOPHEN
     Indication: Anosmia
  17. ACETAMINOPHEN [Suspect]
     Active Substance: ACETAMINOPHEN
     Indication: Cough

REACTIONS (3)
  - Drug effective for unapproved indication [Unknown]
  - Product use in unapproved indication [Unknown]
  - Product use issue [Unknown]
